FAERS Safety Report 9566847 (Version 1)
Quarter: 2013Q3

REPORT INFORMATION
  Report Type: Spontaneous
  Country: US (occurrence: US)
  Receive Date: 20130930
  Receipt Date: 20130930
  Transmission Date: 20140515
  Serious: No
  Sender: FDA-Public Use
  Company Number: US-AMGEN-USASP2012069467

PATIENT
  Age: 54 Year
  Sex: Female
  Weight: 63 kg

DRUGS (15)
  1. ENBREL [Suspect]
     Indication: PSORIATIC ARTHROPATHY
     Dosage: 25 MG, 2 TIMES/WK
     Route: 058
  2. RECLAST [Concomitant]
     Dosage: 5/100 ML
  3. CELEBREX [Concomitant]
     Dosage: 400 MG, UNK
  4. PREDNISONE [Concomitant]
     Dosage: 5 MG, UNK
  5. LEVOTHYROXINE [Concomitant]
     Dosage: 25 MUG, UNK
  6. BUPRON-SR [Concomitant]
     Dosage: 150 MG XL, UNK
  7. FOLIC ACID [Concomitant]
     Dosage: 1 MG, UNK
  8. LUNESTA [Concomitant]
     Dosage: 1 MG, UNK
  9. POLYETHYLENE GLYCOL 3350 [Concomitant]
     Dosage: 3350 NF
  10. TYLENOL ARTHRITIS [Concomitant]
     Dosage: 650 MG, UNK
  11. OSCAL                              /00514701/ [Concomitant]
     Dosage: 500/TAB 200 D-3
  12. DEXILANT [Concomitant]
     Dosage: 30 MG DR, UNK
  13. SOMA [Concomitant]
     Dosage: 350 MG, UNK
  14. METHOTREXATE [Concomitant]
     Dosage: 20 MG, UNK
  15. REMICADE [Concomitant]
     Dosage: UNK

REACTIONS (4)
  - Gastrointestinal inflammation [Unknown]
  - Arthralgia [Unknown]
  - Gait disturbance [Unknown]
  - Drug ineffective [Unknown]
